FAERS Safety Report 26093501 (Version 1)
Quarter: 2025Q4

REPORT INFORMATION
  Report Type: Spontaneous
  Country: CN (occurrence: CN)
  Receive Date: 20251126
  Receipt Date: 20251126
  Transmission Date: 20260118
  Serious: Yes (Other)
  Sender: BAYER HEALTHCARE PHARMACEUTICALS INC.
  Company Number: CN-BAYER-2025A156311

PATIENT
  Age: 37 Year
  Sex: Female
  Weight: 56 kg

DRUGS (1)
  1. YAZ [Suspect]
     Active Substance: DROSPIRENONE\ETHINYL ESTRADIOL
     Indication: Menstruation irregular
     Dosage: 1 DF, QD
     Route: 048
     Dates: start: 20251120, end: 20251122

REACTIONS (4)
  - Dermatitis atopic [Recovering/Resolving]
  - Rash pruritic [Recovering/Resolving]
  - Product prescribing issue [None]
  - Product use in unapproved indication [None]

NARRATIVE: CASE EVENT DATE: 20251120
